FAERS Safety Report 18958022 (Version 1)
Quarter: 2021Q1

REPORT INFORMATION
  Report Type: Spontaneous
  Country: US (occurrence: US)
  Receive Date: 20210301
  Receipt Date: 20210301
  Transmission Date: 20210420
  Serious: Yes (Hospitalization)
  Sender: FDA-Public Use
  Company Number: None

PATIENT
  Age: 70 Year
  Sex: Female

DRUGS (10)
  1. XELJANZ XR [Suspect]
     Active Substance: TOFACITINIB CITRATE
     Indication: RHEUMATOID ARTHRITIS
     Route: 048
     Dates: start: 20170302
  2. ACETAMINOPHEN. [Concomitant]
     Active Substance: ACETAMINOPHEN
  3. BENZONATATE. [Concomitant]
     Active Substance: BENZONATATE
  4. CHLORTHALID [Concomitant]
     Active Substance: CHLORTHALIDONE
  5. CIPROFLOXACIN. [Concomitant]
     Active Substance: CIPROFLOXACIN
  6. DOK [Concomitant]
     Active Substance: DOCUSATE SODIUM
  7. CYCLOBENZAPR [Concomitant]
     Active Substance: CYCLOBENZAPRINE
  8. DEXAMETHASON [Concomitant]
     Active Substance: DEXAMETHASONE
  9. DOXYCYC MONO [Concomitant]
     Active Substance: DOXYCYCLINE
  10. LEVOFLOXACIN. [Concomitant]
     Active Substance: LEVOFLOXACIN

REACTIONS (3)
  - Intentional dose omission [None]
  - COVID-19 [None]
  - Rheumatoid arthritis [None]
